FAERS Safety Report 16596498 (Version 3)
Quarter: 2019Q3

REPORT INFORMATION
  Report Type: Spontaneous
  Country: US (occurrence: US)
  Receive Date: 20190719
  Receipt Date: 20190828
  Transmission Date: 20191004
  Serious: Yes (Other)
  Sender: FDA-Public Use
  Company Number: US-AUROBINDO-AUR-APL-2019-041998

PATIENT

DRUGS (1)
  1. AMLODIPINE AND VALSARTAN TABLET USP 5 MG/160 MG [Suspect]
     Active Substance: AMLODIPINE\VALSARTAN
     Indication: BLOOD PRESSURE MEASUREMENT
     Dosage: UNK
     Route: 065

REACTIONS (4)
  - Non-Hodgkin^s lymphoma stage IV [Unknown]
  - Metastases to bone marrow [Unknown]
  - Metastases to lymph nodes [Unknown]
  - Blood count abnormal [Unknown]
